FAERS Safety Report 6636966-9 (Version None)
Quarter: 2010Q1

REPORT INFORMATION
  Report Type: 
  Country: None (occurrence: None)
  Receive Date: 20100316
  Receipt Date: 20100305
  Transmission Date: 20100710
  Serious: Yes (Hospitalization)
  Sender: FDA-Public Use
  Company Number: JP-MPIJNJ-2010-01398

PATIENT

DRUGS (7)
  1. VELCADE [Suspect]
     Indication: MULTIPLE MYELOMA
     Dosage: 1.3 MG/M2, UNK
     Route: 042
     Dates: start: 20100202, end: 20100212
  2. MELPHALAN [Suspect]
     Indication: MULTIPLE MYELOMA
     Dosage: 12 MG, QD
     Route: 048
     Dates: start: 20100202, end: 20100205
  3. PREDNISONE [Suspect]
     Indication: MULTIPLE MYELOMA
     Dosage: 80 MG, QD
     Route: 048
     Dates: start: 20100202, end: 20100205
  4. GASTER D [Concomitant]
     Indication: GASTRITIS PROPHYLAXIS
     Dosage: 20 MG, QD
     Route: 048
     Dates: start: 20100211
  5. ANTIDIARRHEAL [Concomitant]
     Indication: CONSTIPATION
     Route: 048
  6. PANTOSIN [Concomitant]
     Indication: CONSTIPATION
     Dosage: 300 MG, QD
     Route: 048
     Dates: start: 20100215
  7. MAGMITT [Concomitant]
     Indication: CONSTIPATION
     Dosage: 990 MG, QD
     Route: 048
     Dates: start: 20100215

REACTIONS (1)
  - DRUG ERUPTION [None]
